FAERS Safety Report 16254538 (Version 1)
Quarter: 2019Q2

REPORT INFORMATION
  Report Type: Spontaneous
  Country: FR (occurrence: FR)
  Receive Date: 20190430
  Receipt Date: 20190430
  Transmission Date: 20190711
  Serious: Yes (Hospitalization)
  Sender: FDA-Public Use
  Company Number: FR-AUROBINDO-AUR-APL-2019-023132

PATIENT

DRUGS (6)
  1. CITALOPRAM [Suspect]
     Active Substance: CITALOPRAM HYDROBROMIDE
     Indication: DEPRESSION
     Dosage: 20 MILLIGRAM, ONCE A DAY
     Route: 048
     Dates: start: 20190108, end: 20190204
  2. CARBIDOPA. [Concomitant]
     Active Substance: CARBIDOPA
     Indication: PARKINSON^S DISEASE
     Dosage: 5 DOSAGE FORM, ONCE A DAY
     Route: 048
     Dates: start: 20160101
  3. CLOZAPINE. [Concomitant]
     Active Substance: CLOZAPINE
     Indication: ABNORMAL BEHAVIOUR
     Dosage: 50 MILLIGRAM, ONCE A DAY
     Route: 048
     Dates: start: 20170101
  4. AZILECT [Concomitant]
     Active Substance: RASAGILINE MESYLATE
     Indication: PARKINSON^S DISEASE
     Dosage: 1 DOSAGE FORM, ONCE A DAY
     Route: 048
     Dates: start: 20160101
  5. LEVODOPA [Concomitant]
     Active Substance: LEVODOPA
     Indication: PARKINSON^S DISEASE
     Dosage: UNK
     Route: 048
     Dates: start: 20160101
  6. SINEMET LP [Concomitant]
     Active Substance: CARBIDOPA\LEVODOPA
     Indication: PARKINSON^S DISEASE
     Dosage: 2 DOSAGE FORM, ONCE A DAY
     Route: 048
     Dates: start: 20160101

REACTIONS (2)
  - Agitation [Recovered/Resolved]
  - Pyrexia [Recovered/Resolved]

NARRATIVE: CASE EVENT DATE: 20190202
